FAERS Safety Report 16142049 (Version 1)
Quarter: 2019Q2

REPORT INFORMATION
  Report Type: Spontaneous
  Country: US (occurrence: US)
  Receive Date: 20190401
  Receipt Date: 20190401
  Transmission Date: 20190711
  Serious: No
  Sender: FDA-Public Use
  Company Number: US-SA-2018SA106272

PATIENT
  Age: 37 Year
  Sex: Female

DRUGS (2)
  1. DUPIXENT [Suspect]
     Active Substance: DUPILUMAB
     Indication: DERMATITIS ATOPIC
     Dosage: 600 MG,1X
     Route: 058
     Dates: start: 201803, end: 201803
  2. DUPIXENT [Suspect]
     Active Substance: DUPILUMAB
     Dosage: 300 MG,QOW
     Route: 058

REACTIONS (6)
  - Dermatitis [Unknown]
  - Night sweats [Unknown]
  - Hypersensitivity [Unknown]
  - Rash generalised [Unknown]
  - Pruritus [Unknown]
  - Swelling [Unknown]

NARRATIVE: CASE EVENT DATE: 2018
